FAERS Safety Report 18735287 (Version 1)
Quarter: 2021Q1

REPORT INFORMATION
  Report Type: Spontaneous
  Country: US (occurrence: US)
  Receive Date: 20210113
  Receipt Date: 20210113
  Transmission Date: 20210419
  Serious: Yes (Death)
  Sender: FDA-Public Use
  Company Number: None

PATIENT
  Age: 78 Year
  Sex: Female

DRUGS (11)
  1. DICLOFENAC GEL [Concomitant]
     Active Substance: DICLOFENAC
  2. SODIUM BICAR [Concomitant]
  3. DEXAMETHASON [Concomitant]
     Active Substance: DEXAMETHASONE
  4. LEVOTHYROXIN [Concomitant]
     Active Substance: LEVOTHYROXINE
  5. LIDOCAINE. [Concomitant]
     Active Substance: LIDOCAINE
  6. OXYCODONE [Concomitant]
     Active Substance: OXYCODONE
  7. DILTIAZEM ER [Concomitant]
     Active Substance: DILTIAZEM
  8. ENBREL [Suspect]
     Active Substance: ETANERCEPT
     Indication: RHEUMATOID ARTHRITIS
     Dosage: ?          OTHER FREQUENCY:ONCE A WEEK;?
     Route: 058
     Dates: start: 20180207
  9. TRAMADOL. [Concomitant]
     Active Substance: TRAMADOL
  10. BENZONATATE. [Concomitant]
     Active Substance: BENZONATATE
  11. PANTOPRAZOLE [Concomitant]
     Active Substance: PANTOPRAZOLE

REACTIONS (1)
  - Death [None]
